FAERS Safety Report 20819527 (Version 3)
Quarter: 2023Q2

REPORT INFORMATION
  Report Type: Spontaneous
  Country: CA (occurrence: CA)
  Receive Date: 20220512
  Receipt Date: 20230511
  Transmission Date: 20230721
  Serious: Yes (Other)
  Sender: FDA-Public Use
  Company Number: CA-SAMSUNG BIOEPIS-SB-2022-10969

PATIENT
  Age: 23 Year
  Sex: Male
  Weight: 82 kg

DRUGS (2)
  1. INFLIXIMAB [Suspect]
     Active Substance: INFLIXIMAB
     Indication: Crohn^s disease
     Route: 042
  2. METHOTREXATE [Concomitant]
     Active Substance: METHOTREXATE
     Indication: Product used for unknown indication
     Route: 065

REACTIONS (9)
  - Crohn^s disease [Unknown]
  - Infusion related reaction [Unknown]
  - Peripheral coldness [Unknown]
  - Poor venous access [Unknown]
  - Faecal calprotectin increased [Unknown]
  - Drug level decreased [Unknown]
  - Product storage error [Unknown]
  - Inappropriate schedule of product administration [Unknown]
  - Off label use [Unknown]
